FAERS Safety Report 9969650 (Version 1)
Quarter: 2014Q1

REPORT INFORMATION
  Report Type: Spontaneous
  Country: US (occurrence: None)
  Receive Date: 20140304
  Receipt Date: 20140304
  Transmission Date: 20141002
  Serious: Yes (Hospitalization)
  Sender: FDA-Public Use
  Company Number: None

PATIENT
  Sex: Male

DRUGS (1)
  1. TESTIM [Suspect]
     Indication: BLOOD TESTOSTERONE DECREASED
     Dosage: 50 MG/DAILY ONCE DAILY APPLIED TO A SURFACE, USALLY THE SKIN
     Route: 061
     Dates: start: 20080211, end: 20081216

REACTIONS (5)
  - Pain in extremity [None]
  - Deep vein thrombosis [None]
  - Foot deformity [None]
  - Hypoaesthesia [None]
  - Paralysis [None]
